FAERS Safety Report 11102969 (Version 1)
Quarter: 2015Q2

REPORT INFORMATION
  Report Type: Spontaneous
  Country: FR (occurrence: FR)
  Receive Date: 20150511
  Receipt Date: 20150511
  Transmission Date: 20150821
  Serious: Yes (Hospitalization)
  Sender: FDA-Public Use
  Company Number: FR-JNJFOC-20150505894

PATIENT
  Age: 58 Year
  Sex: Male

DRUGS (3)
  1. MIOREL [Suspect]
     Active Substance: ORPHENADRINE
     Indication: SCIATICA
     Dosage: CUMULATIVE DOSE TO 1ST REACTION 48 MG
     Route: 048
     Dates: start: 20150108, end: 20150113
  2. IXPRIM [Suspect]
     Active Substance: ACETAMINOPHEN\TRAMADOL HYDROCHLORIDE
     Indication: SCIATICA
     Dosage: CUMULATIVE DOSE TO 1ST REACTION 18
     Route: 048
     Dates: start: 20150108, end: 20150110
  3. KETOPROFEN. [Suspect]
     Active Substance: KETOPROFEN
     Indication: SCIATICA
     Dosage: CUMULATIVE DOSE TO 1ST REACTION 1200 MG
     Route: 048
     Dates: start: 20150108, end: 20150113

REACTIONS (1)
  - Gastric ulcer [Unknown]

NARRATIVE: CASE EVENT DATE: 20150114
